FAERS Safety Report 16862364 (Version 2)
Quarter: 2020Q1

REPORT INFORMATION
  Report Type: Spontaneous
  Country: US (occurrence: US)
  Receive Date: 20190927
  Receipt Date: 20200105
  Transmission Date: 20200409
  Serious: No
  Sender: FDA-Public Use
  Company Number: US-GLENMARK PHARMACEUTICALS-2019GMK043094

PATIENT

DRUGS (2)
  1. ESTRADIOL VAGINAL INSERTS USP [Suspect]
     Active Substance: ESTRADIOL
     Indication: BLOOD OESTROGEN DECREASED
     Dosage: UNK, 2X WEEKLY
     Route: 067
     Dates: start: 201902, end: 20190606
  2. ESTRADIOL VAGINAL INSERTS USP [Suspect]
     Active Substance: ESTRADIOL
     Indication: VULVOVAGINAL DRYNESS

REACTIONS (10)
  - Vulvovaginal discomfort [Recovering/Resolving]
  - Drug ineffective [Unknown]
  - Vulvovaginal burning sensation [Recovering/Resolving]
  - Cystocele [Recovering/Resolving]
  - Bladder prolapse [Recovering/Resolving]
  - Product substitution issue [Unknown]
  - Vulvovaginal dryness [Recovering/Resolving]
  - Vulvovaginal pain [Recovering/Resolving]
  - Product physical issue [Unknown]
  - Discomfort [Recovering/Resolving]

NARRATIVE: CASE EVENT DATE: 2019
